FAERS Safety Report 7965164-1 (Version None)
Quarter: 2011Q4

REPORT INFORMATION
  Report Type: 
  Country: None (occurrence: None)
  Receive Date: 20111208
  Receipt Date: 20111206
  Transmission Date: 20120403
  Serious: Yes (Hospitalization, Other)
  Sender: FDA-Public Use
  Company Number: FR-ROCHE-762947

PATIENT
  Sex: Male

DRUGS (5)
  1. PEGINTERFERON ALFA-2A [Suspect]
     Indication: HEPATITIS C
     Route: 058
  2. COPEGUS [Suspect]
     Indication: HEPATITIS C
     Route: 048
  3. ARANESP [Concomitant]
     Indication: NEPHROGENIC ANAEMIA
  4. ATACAND [Concomitant]
     Indication: HYPERTENSION
  5. NOVORAPID [Concomitant]
     Indication: DIABETES MELLITUS

REACTIONS (2)
  - PROSTATITIS [None]
  - ANAEMIA [None]
